FAERS Safety Report 7419533-9 (Version None)
Quarter: 2011Q2

REPORT INFORMATION
  Report Type: 
  Country: None (occurrence: None)
  Receive Date: 20110418
  Receipt Date: 20110407
  Transmission Date: 20111010
  Serious: Yes (Hospitalization)
  Sender: FDA-Public Use
  Company Number: PHHO2011JP04188

PATIENT

DRUGS (17)
  1. BLINDED NO TREATMENT RECEIVED [Suspect]
     Indication: CARDIAC FAILURE
     Dosage: CODE NOT BROKEN
     Route: 048
     Dates: start: 20100412, end: 20110226
  2. ENALAPRIL MALEATE [Suspect]
     Indication: CARDIAC FAILURE
     Dosage: UNK
     Route: 048
     Dates: start: 20100119, end: 20100411
  3. CALBLOCK [Concomitant]
  4. MUCOSOLVAN [Concomitant]
  5. ENALAPRIL MALEATE [Suspect]
     Indication: CARDIAC FAILURE
     Dosage: CODE NOT BROKEN
     Route: 048
     Dates: start: 20100412, end: 20110226
  6. WARFARIN [Concomitant]
  7. ALOSITOL [Concomitant]
  8. BLINDED ALISKIREN [Suspect]
     Indication: CARDIAC FAILURE
     Dosage: CODE NOT BROKEN
     Route: 048
     Dates: start: 20100412, end: 20110226
  9. CLARITHROMYCIN [Concomitant]
  10. MAINTATE [Concomitant]
  11. ASPIRIN [Concomitant]
  12. THEOLONG [Concomitant]
  13. LASIX [Concomitant]
  14. METFORMIN HCL [Concomitant]
  15. MEDICON (DEXTROMETHORPHAN HYDROBROMIDE) [Concomitant]
  16. ALISKIREN [Suspect]
     Indication: CARDIAC FAILURE
     Dosage: UNK
     Route: 048
     Dates: start: 20100119, end: 20100411
  17. MEVALOTIN [Concomitant]

REACTIONS (13)
  - NASOPHARYNGITIS [None]
  - ATRIAL FLUTTER [None]
  - BULIMIA NERVOSA [None]
  - WEIGHT INCREASED [None]
  - DIABETES MELLITUS INADEQUATE CONTROL [None]
  - DYSPNOEA [None]
  - CARDIAC FAILURE [None]
  - GENERALISED OEDEMA [None]
  - OBESITY [None]
  - MOBILITY DECREASED [None]
  - ABDOMINAL DISTENSION [None]
  - SLEEP APNOEA SYNDROME [None]
  - URINE OUTPUT DECREASED [None]
